FAERS Safety Report 18939488 (Version 1)
Quarter: 2021Q1

REPORT INFORMATION
  Report Type: Report from Study
  Country: IT (occurrence: IT)
  Receive Date: 20210224
  Receipt Date: 20210224
  Transmission Date: 20210420
  Serious: Yes (Hospitalization, Other)
  Sender: FDA-Public Use
  Company Number: IT-EXELIXIS-XL18419021973

PATIENT
  Age: 68 Year
  Sex: Male
  Weight: 80 kg

DRUGS (6)
  1. CABOZANTINIB [Suspect]
     Active Substance: CABOZANTINIB
     Dosage: 60 MG, QD
     Route: 048
     Dates: start: 20190619, end: 20190711
  2. CABOZANTINIB [Suspect]
     Active Substance: CABOZANTINIB
     Dosage: 60 MG, QD
     Route: 048
     Dates: start: 20190722, end: 20190811
  3. CABOZANTINIB [Suspect]
     Active Substance: CABOZANTINIB
     Dosage: 60 MG,QD
     Route: 048
     Dates: start: 20190520, end: 20190526
  4. CABOZANTINIB [Suspect]
     Active Substance: CABOZANTINIB
     Dosage: 40 MG, QD
     Route: 048
     Dates: start: 20190812, end: 20190908
  5. CABOZANTINIB [Suspect]
     Active Substance: CABOZANTINIB
     Dosage: 40 MG, QD
     Route: 048
     Dates: start: 20190924, end: 20191103
  6. CABOZANTINIB [Suspect]
     Active Substance: CABOZANTINIB
     Indication: RENAL CELL CARCINOMA
     Dosage: 60 MG, QD
     Route: 048
     Dates: start: 20190325, end: 20190505

REACTIONS (9)
  - Neoplasm malignant [Not Recovered/Not Resolved]
  - Decreased appetite [Recovered/Resolved]
  - Nausea [Recovering/Resolving]
  - Hernia [Recovered/Resolved]
  - Nausea [Recovered/Resolved]
  - Decreased appetite [Recovered/Resolved]
  - Weight decreased [Recovered/Resolved]
  - Pyrexia [Recovered/Resolved]
  - Fatigue [Recovered/Resolved]

NARRATIVE: CASE EVENT DATE: 201903
